FAERS Safety Report 13337051 (Version 1)
Quarter: 2017Q1

REPORT INFORMATION
  Report Type: Spontaneous
  Country: US (occurrence: US)
  Receive Date: 20170315
  Receipt Date: 20170315
  Transmission Date: 20170428
  Serious: No
  Sender: FDA-Public Use
  Company Number: US-PFIZER INC-2017113594

PATIENT
  Age: 61 Year
  Sex: Male

DRUGS (3)
  1. HCTZ [Suspect]
     Active Substance: HYDROCHLOROTHIAZIDE
     Dosage: UNK
  2. DILANTIN [Suspect]
     Active Substance: PHENYTOIN
     Dosage: UNK
  3. DURAGESIC [Suspect]
     Active Substance: FENTANYL
     Dosage: UNK

REACTIONS (1)
  - Drug hypersensitivity [Unknown]
